FAERS Safety Report 14085688 (Version 1)
Quarter: 2017Q4

REPORT INFORMATION
  Report Type: Spontaneous
  Country: US (occurrence: US)
  Receive Date: 20171013
  Receipt Date: 20171013
  Transmission Date: 20180321
  Serious: No
  Sender: FDA-Public Use
  Company Number: US-ASTRAZENECA-2016SE12507

PATIENT
  Sex: Female
  Weight: 61.2 kg

DRUGS (3)
  1. ZOMIG [Suspect]
     Active Substance: ZOLMITRIPTAN
     Indication: MIGRAINE
     Dosage: 5 MG TWO TIMES PER MONTH
     Route: 045
     Dates: start: 2011
  2. ZOMIG [Suspect]
     Active Substance: ZOLMITRIPTAN
     Indication: MIGRAINE
     Dosage: 1 TABLET AS NEEDED FOR MIGRAINE
     Route: 048
     Dates: start: 2011
  3. AMITRIPTYLINE [Concomitant]
     Active Substance: AMITRIPTYLINE
     Indication: MIGRAINE PROPHYLAXIS

REACTIONS (5)
  - Product quality issue [Unknown]
  - Product taste abnormal [Unknown]
  - Pharyngeal disorder [Unknown]
  - Retching [Unknown]
  - Drug ineffective [Recovered/Resolved]
